FAERS Safety Report 7021955-5 (Version None)
Quarter: 2010Q3

REPORT INFORMATION
  Report Type: 
  Country: None (occurrence: None)
  Receive Date: 20100930
  Receipt Date: 20100914
  Transmission Date: 20110219
  Serious: Yes (Hospitalization, Disabling)
  Sender: FDA-Public Use
  Company Number: US-BAYER-201014001NA

PATIENT
  Age: 44 Year
  Sex: Female
  Weight: 91 kg

DRUGS (51)
  1. YASMIN [Suspect]
     Indication: ABDOMINAL PAIN
     Route: 048
     Dates: start: 20050901, end: 20080127
  2. LIVERGY ADRENIX [Concomitant]
  3. VITAMIN B-12 [Concomitant]
  4. VITAMIN B6 [Concomitant]
  5. SOYLECITHIN [Concomitant]
  6. CHROLINE [Concomitant]
  7. DMAE [Concomitant]
  8. GABA [Concomitant]
  9. GINKGO BILOBA [Concomitant]
  10. LUPERTINE A [Concomitant]
  11. LIQUID VITAMINS [Concomitant]
  12. CALCIUM [Concomitant]
  13. GLUCOSAMINE [Concomitant]
  14. POWDER DRINK [Concomitant]
  15. ACT [Concomitant]
  16. POTASSIUM [Concomitant]
  17. VHC [Concomitant]
  18. VH B3 [Concomitant]
  19. FIBERSOL [Concomitant]
  20. GUARANA GREEN TEA [Concomitant]
  21. PANAX [Concomitant]
  22. GINSENG [Concomitant]
  23. STEVIA [Concomitant]
  24. LARGININE [Concomitant]
  25. TAURMY [Concomitant]
  26. L-CARNITINE [Concomitant]
  27. TYROSINE [Concomitant]
  28. MAEA ROOT [Concomitant]
  29. CL PROZYME [Concomitant]
  30. PCT [Concomitant]
  31. GRAPE SEED [Concomitant]
  32. MSM [Concomitant]
  33. LYCOPENE [Concomitant]
  34. ZINC [Concomitant]
  35. BIOTIN [Concomitant]
  36. SELENIUM [Concomitant]
  37. PANTHOTHONIA ACID [Concomitant]
  38. COPPER [Concomitant]
  39. IRON [Concomitant]
  40. POTASSIUM [Concomitant]
  41. MAGNESIUM [Concomitant]
  42. CHROMIUM CHLORIDE [Concomitant]
  43. THIAMIN 3 [Concomitant]
  44. VHACDEK [Concomitant]
  45. NIACIN [Concomitant]
  46. MINERAL POWDER [Concomitant]
  47. FOLIC ACID [Concomitant]
  48. FRUIT/VEGETABLE POWDER [Concomitant]
  49. RIBOFLAVIN TAB [Concomitant]
  50. IBUPROFEN [Concomitant]
     Route: 048
  51. TYLENOL [Concomitant]

REACTIONS (11)
  - BACK PAIN [None]
  - BURNING SENSATION [None]
  - DEEP VEIN THROMBOSIS [None]
  - IMMOBILISATION PROLONGED [None]
  - INFLAMMATION [None]
  - MENTAL DISORDER [None]
  - MUSCULAR WEAKNESS [None]
  - OEDEMA PERIPHERAL [None]
  - PAIN IN EXTREMITY [None]
  - PELVIC PAIN [None]
  - SKIN DISCOLOURATION [None]
